FAERS Safety Report 5571543-2 (Version None)
Quarter: 2007Q4

REPORT INFORMATION
  Report Type: 
  Country: None (occurrence: None)
  Receive Date: 20071221
  Receipt Date: 20071213
  Transmission Date: 20080405
  Serious: Yes (Life-Threatening, Hospitalization)
  Sender: FDA-Public Use
  Company Number: DE-ELI_LILLY_AND_COMPANY-DE200712002901

PATIENT
  Sex: Male
  Weight: 93 kg

DRUGS (3)
  1. BYETTA [Suspect]
     Dosage: 10 UG, DAILY (1/D)
     Route: 058
     Dates: start: 20071015, end: 20071111
  2. BYETTA [Suspect]
     Dosage: 10 UG, 2/D
     Route: 058
     Dates: start: 20071112
  3. METFORMIN HCL [Concomitant]
     Dosage: 1000 MG, UNKNOWN
     Route: 065

REACTIONS (4)
  - HYPERGLYCAEMIA [None]
  - NAUSEA [None]
  - PANCREATITIS ACUTE [None]
  - WEIGHT DECREASED [None]
